FAERS Safety Report 9315534 (Version 2)
Quarter: 2013Q2

REPORT INFORMATION
  Report Type: Report from Study
  Country: CL (occurrence: CL)
  Receive Date: 20130529
  Receipt Date: 20130618
  Transmission Date: 20140414
  Serious: No
  Sender: FDA-Public Use
  Company Number: CL-US-EMD SERONO, INC.-7214022

PATIENT
  Age: 22 Year
  Sex: Female

DRUGS (2)
  1. REBIF [Suspect]
     Indication: MULTIPLE SCLEROSIS
     Route: 058
     Dates: start: 20111007
  2. PRIMIDONE [Concomitant]
     Indication: PRODUCT USED FOR UNKNOWN INDICATION

REACTIONS (5)
  - Injection site atrophy [Not Recovered/Not Resolved]
  - Injection site ulcer [Recovered/Resolved]
  - Skin injury [Recovering/Resolving]
  - Injection site necrosis [Recovered/Resolved]
  - Wrong technique in drug usage process [Unknown]
